FAERS Safety Report 4533456-4 (Version None)
Quarter: 2004Q4

REPORT INFORMATION
  Report Type: 
  Country: None (occurrence: None)
  Receive Date: 20041210
  Receipt Date: 20040126
  Transmission Date: 20050328
  Serious: Yes (Hospitalization)
  Sender: FDA-Public Use
  Company Number: RS004174-USA

PATIENT
  Age: 72 Year
  Sex: Female
  Weight: 67.586 kg

DRUGS (1)
  1. ACIPHEX [Suspect]
     Indication: GASTROOESOPHAGEAL REFLUX DISEASE
     Dosage: 20 MG, ORAL
     Route: 048
     Dates: start: 20031215, end: 20040123

REACTIONS (2)
  - FULL BLOOD COUNT DECREASED [None]
  - PRURITUS GENERALISED [None]
